FAERS Safety Report 17859253 (Version 1)
Quarter: 2020Q2

REPORT INFORMATION
  Report Type: Spontaneous
  Country: US (occurrence: US)
  Receive Date: 20200603
  Receipt Date: 20200603
  Transmission Date: 20200714
  Serious: Yes (Hospitalization)
  Sender: FDA-Public Use
  Company Number: None

PATIENT
  Age: 63 Year
  Sex: Female

DRUGS (1)
  1. TOBRAMYCIN  300MG /5ML 20ML [Suspect]
     Active Substance: TOBRAMYCIN
     Indication: BRONCHIECTASIS
     Dosage: OTHER DOSE:1 VIAL; :Q12HRS; INH 26 D ON-28 D OFF?
     Route: 055
     Dates: start: 20200505

REACTIONS (1)
  - Pneumothorax [None]

NARRATIVE: CASE EVENT DATE: 202005
